FAERS Safety Report 7366818-0 (Version None)
Quarter: 2011Q1

REPORT INFORMATION
  Report Type: 
  Country: None (occurrence: None)
  Receive Date: 20110322
  Receipt Date: 20110314
  Transmission Date: 20110831
  Serious: Yes (Other)
  Sender: FDA-Public Use
  Company Number: FR-ROCHE-765897

PATIENT
  Sex: Female

DRUGS (3)
  1. TAXOL [Suspect]
     Route: 042
     Dates: start: 20090917, end: 20100915
  2. CLASTOBAN [Suspect]
     Route: 048
     Dates: start: 20100915, end: 20101001
  3. AVASTIN [Suspect]
     Route: 042
     Dates: start: 20090917, end: 20101117

REACTIONS (1)
  - OSTEONECROSIS OF JAW [None]
